FAERS Safety Report 9120996 (Version 1)
Quarter: 2013Q1

REPORT INFORMATION
  Report Type: Spontaneous
  Country: US (occurrence: US)
  Receive Date: 20130226
  Receipt Date: 20130226
  Transmission Date: 20140127
  Serious: Yes (Hospitalization, Disabling, Other)
  Sender: FDA-Public Use
  Company Number: US-BRISTOL-MYERS SQUIBB COMPANY-17202672

PATIENT
  Age: 67 Year
  Sex: Male

DRUGS (14)
  1. SPRYCEL (CML) TABS 100 MG [Suspect]
     Indication: PROSTATE CANCER
     Dosage: 04NOV2012;?DOSE REDUCED TO 100MG
     Dates: start: 20121029, end: 20121227
  2. LUPRON DEPOT [Concomitant]
  3. LISINOPRIL + HCTZ [Concomitant]
     Dosage: 1DF: 20MG/25MG
  4. CITALOPRAM [Concomitant]
  5. CYCLOPHOSPHAMIDE [Concomitant]
  6. AMBIEN [Concomitant]
  7. COLACE [Concomitant]
  8. MAGNESIUM CITRATE [Concomitant]
  9. PREDNISONE [Concomitant]
  10. ALDACTONE [Concomitant]
  11. NYSTATIN ORAL SUSPENSION [Concomitant]
  12. PROTONIX [Concomitant]
  13. ZOFRAN [Concomitant]
     Dosage: ZOFRAN ODT
  14. COMPAZINE [Concomitant]

REACTIONS (2)
  - Pleural effusion [Unknown]
  - Hydropneumothorax [Unknown]
